FAERS Safety Report 23136825 (Version 4)
Quarter: 2024Q1

REPORT INFORMATION
  Report Type: Spontaneous
  Country: IT (occurrence: IT)
  Receive Date: 20231102
  Receipt Date: 20240321
  Transmission Date: 20240410
  Serious: Yes (Hospitalization)
  Sender: FDA-Public Use
  Company Number: IT-ROCHE-2194937

PATIENT
  Age: 60 Year
  Sex: Female
  Weight: 70 kg

DRUGS (45)
  1. CAPECITABINE [Suspect]
     Active Substance: CAPECITABINE
     Indication: HER2 positive breast cancer
     Dosage: FREQUENCY: OTHER MOST RECENT DOSE PRIOR TO THE EVENT: 05/AUG/2022
     Route: 048
     Dates: start: 20220805, end: 20220824
  2. CAPECITABINE [Suspect]
     Active Substance: CAPECITABINE
     Indication: HER2 positive breast cancer
     Route: 048
     Dates: start: 20221205, end: 20230112
  3. DOCETAXEL [Suspect]
     Active Substance: DOCETAXEL\DOCETAXEL ANHYDROUS
     Indication: HER2 positive breast cancer
     Dosage: ONCE IN 3 WEEKS
     Route: 042
     Dates: start: 20171118, end: 20180210
  4. DOCETAXEL [Suspect]
     Active Substance: DOCETAXEL\DOCETAXEL ANHYDROUS
     Indication: HER2 positive breast cancer
     Dosage: MOST RECENT DOSE WAS RECIVED ON 14/APR/2018
     Route: 042
     Dates: start: 20180303, end: 20180414
  5. TRASTUZUMAB [Suspect]
     Active Substance: TRASTUZUMAB
     Indication: HER2 positive breast cancer
     Dosage: ONCE IN 3 WEEKS
     Route: 042
     Dates: start: 20171118, end: 20171118
  6. TRASTUZUMAB [Suspect]
     Active Substance: TRASTUZUMAB
     Indication: HER2 positive breast cancer
     Dosage: MOST RECENT DOSE PRIOR TO THE EVENT: 09/DEC/2017
     Route: 042
     Dates: start: 20171209, end: 20210521
  7. TRASTUZUMAB [Suspect]
     Active Substance: TRASTUZUMAB
     Indication: HER2 positive breast cancer
     Route: 042
     Dates: start: 20220527, end: 20220729
  8. TRASTUZUMAB [Suspect]
     Active Substance: TRASTUZUMAB
     Indication: HER2 positive breast cancer
     Route: 042
     Dates: start: 20220617, end: 20220729
  9. RIBOCICLIB [Suspect]
     Active Substance: RIBOCICLIB
     Indication: HER2 positive breast cancer
     Route: 048
     Dates: start: 20210618, end: 20220114
  10. PEMBROLIZUMAB [Suspect]
     Active Substance: PEMBROLIZUMAB
     Indication: HER2 positive breast cancer
     Dosage: SINGLE 3 WEEKS
     Route: 042
     Dates: start: 20220204, end: 20220225
  11. CARBOPLATIN [Suspect]
     Active Substance: CARBOPLATIN
     Indication: HER2 positive breast cancer
     Dosage: SINGLE 3 WEEKS
     Route: 042
     Dates: start: 20220204, end: 20220225
  12. CARBOPLATIN [Suspect]
     Active Substance: CARBOPLATIN
     Indication: HER2 positive breast cancer
     Dosage: MOST RECENT DOSE PRIOR TO THE EVENT: 27/MAY/2022
     Route: 042
     Dates: start: 20220527, end: 20220729
  13. DOXORUBICIN [Suspect]
     Active Substance: DOXORUBICIN
     Indication: HER2 positive breast cancer
     Dosage: SINGLE 3 WEEKS
     Route: 042
     Dates: start: 20220315, end: 20220520
  14. DOXORUBICIN [Suspect]
     Active Substance: DOXORUBICIN
     Indication: HER2 positive breast cancer
     Dosage: SINGLE 3 WEEKS
     Route: 042
     Dates: start: 20220315, end: 20220520
  15. EXEMESTANE [Suspect]
     Active Substance: EXEMESTANE
     Indication: HER2 positive breast cancer
     Dosage: DAILY DOSE: 25 MILLIGRAM
     Route: 048
     Dates: start: 20180713, end: 20201009
  16. CYCLOPHOSPHAMIDE [Suspect]
     Active Substance: CYCLOPHOSPHAMIDE
     Indication: HER2 positive breast cancer
     Dosage: MOST RECENT DOSE PRIOR TO AE 20/MAY/2022
     Route: 042
     Dates: start: 20220315, end: 20220520
  17. CYCLOPHOSPHAMIDE [Suspect]
     Active Substance: CYCLOPHOSPHAMIDE
     Indication: HER2 positive breast cancer
     Dosage: SINGLE 3 WEEKS
     Route: 042
     Dates: start: 20220315, end: 20220520
  18. GEMCITABINE [Suspect]
     Active Substance: GEMCITABINE
     Indication: HER2 positive breast cancer
     Dosage: SINGLE 3 WEEKS
     Route: 042
     Dates: start: 20220527, end: 20220729
  19. GEMCITABINE [Suspect]
     Active Substance: GEMCITABINE
     Indication: HER2 positive breast cancer
     Dosage: SINGLE 3 WEEKS
     Route: 042
     Dates: start: 20220527, end: 20220729
  20. FULVESTRANT [Suspect]
     Active Substance: FULVESTRANT
     Indication: HER2 positive breast cancer
     Dosage: SINGLE 3 WEEKS
     Route: 030
     Dates: start: 20210521, end: 20211231
  21. TALAZOPARIB [Suspect]
     Active Substance: TALAZOPARIB
     Route: 048
     Dates: start: 20201106, end: 20210423
  22. PERTUZUMAB [Suspect]
     Active Substance: PERTUZUMAB
     Indication: HER2 positive breast cancer
     Dosage: ONCE IN 3 WEEKS
     Route: 042
     Dates: start: 20171118, end: 20171118
  23. PERTUZUMAB [Suspect]
     Active Substance: PERTUZUMAB
     Indication: HER2 positive breast cancer
     Dosage: MOST RECENT DOSE PRIOR TO THE EVENT: 09/DEC/2017
     Route: 042
     Dates: start: 20171209, end: 20200918
  24. TRIPTORELIN [Suspect]
     Active Substance: TRIPTORELIN
     Dosage: MOST RECENT DOSE RECEIVED ON 02/NOV/2018
     Route: 030
     Dates: start: 20180713
  25. NOLVADEX [Suspect]
     Active Substance: TAMOXIFEN CITRATE
     Dosage: MOST RECENT DOSE RECEIVED ON 12/JUL/2018
     Route: 048
     Dates: start: 20180622
  26. CHLORPHENIRAMINE MALEATE [Concomitant]
     Active Substance: CHLORPHENIRAMINE MALEATE
     Route: 042
     Dates: start: 20171118, end: 20210515
  27. CETIRIZINE HYDROCHLORIDE [Concomitant]
     Active Substance: CETIRIZINE HYDROCHLORIDE
     Dosage: ONGOING = CHECKED
     Dates: start: 20190531, end: 20220805
  28. ALPRAZOLAM [Concomitant]
     Active Substance: ALPRAZOLAM
     Dosage: ONGOING = CHECKED
     Route: 048
     Dates: start: 20180803, end: 20211129
  29. DENOSUMAB [Concomitant]
     Active Substance: DENOSUMAB
     Dosage: ONGOING = CHECKED
     Route: 058
     Dates: start: 20190315, end: 20220125
  30. VEA LIPOGEL [Concomitant]
     Dosage: ONGOING = CHECKED
     Route: 061
     Dates: start: 20190215, end: 20211231
  31. LEVOSULPIRIDE [Concomitant]
     Active Substance: LEVOSULPIRIDE
     Dates: start: 20171118, end: 20180414
  32. LEVOSULPIRIDE [Concomitant]
     Active Substance: LEVOSULPIRIDE
     Dates: start: 20190329, end: 20210706
  33. Ecoval [Concomitant]
     Dosage: ONGOING = CHECKED
     Route: 061
     Dates: start: 20200424, end: 20211231
  34. Decapeptyl [Concomitant]
     Dosage: ONGOING = CHECKED
     Dates: start: 20180713, end: 20181102
  35. DEXAMETHASONE [Concomitant]
     Active Substance: DEXAMETHASONE
     Route: 042
     Dates: start: 20171118, end: 20180414
  36. LANSOPRAZOLE [Concomitant]
     Active Substance: LANSOPRAZOLE
     Route: 048
     Dates: start: 20171117, end: 20171207
  37. LANSOPRAZOLE [Concomitant]
     Active Substance: LANSOPRAZOLE
     Dates: start: 20171118, end: 20180414
  38. LANSOPRAZOLE [Concomitant]
     Active Substance: LANSOPRAZOLE
     Route: 048
     Dates: start: 20171208, end: 20180413
  39. LANSOPRAZOLE [Concomitant]
     Active Substance: LANSOPRAZOLE
     Route: 048
     Dates: start: 20180504, end: 20180622
  40. LOPERAMIDE [Concomitant]
     Active Substance: LOPERAMIDE
     Indication: Diarrhoea
     Dosage: ONGOING = NOT CHECKED
     Dates: start: 20171119, end: 20180302
  41. PREDNISONE [Concomitant]
     Active Substance: PREDNISONE
     Dates: start: 20171117, end: 20171229
  42. PREDNISONE [Concomitant]
     Active Substance: PREDNISONE
     Dates: start: 20171117, end: 20180503
  43. PREDNISONE [Concomitant]
     Active Substance: PREDNISONE
     Dosage: ONGOING = NOT CHECKED
     Dates: start: 20171230, end: 20180503
  44. ONDANSETRON [Concomitant]
     Active Substance: ONDANSETRON
     Route: 042
     Dates: start: 20210514, end: 20220729
  45. LORAZEPAM [Concomitant]
     Active Substance: LORAZEPAM

REACTIONS (2)
  - Pneumonia [Recovered/Resolved]
  - Diarrhoea [Recovered/Resolved]

NARRATIVE: CASE EVENT DATE: 20220819
